FAERS Safety Report 19874994 (Version 2)
Quarter: 2021Q4

REPORT INFORMATION
  Report Type: Spontaneous
  Country: US (occurrence: US)
  Receive Date: 20210923
  Receipt Date: 20211004
  Transmission Date: 20220303
  Serious: Yes (Other)
  Sender: FDA-Public Use
  Company Number: US-TEVA-2021-US-1955632

PATIENT
  Age: 11 Year
  Sex: Female

DRUGS (1)
  1. METHYLPREDNISOLONE [Suspect]
     Active Substance: METHYLPREDNISOLONE
     Indication: Dermatomyositis
     Dosage: 30 MG/KG/DAY FOR 3 DAYS
     Route: 041

REACTIONS (3)
  - Hypotension [Recovered/Resolved]
  - Blood pressure abnormal [Recovered/Resolved]
  - Pulse pressure increased [Recovered/Resolved]
